FAERS Safety Report 13129040 (Version 2)
Quarter: 2017Q1

REPORT INFORMATION
  Report Type: Report from Study
  Country: None (occurrence: US)
  Receive Date: 20170119
  Receipt Date: 20170222
  Transmission Date: 20170428
  Serious: Yes (Other)
  Sender: FDA-Public Use
  Company Number: US-ABBVIE-17P-163-1839021-00

PATIENT
  Sex: Female

DRUGS (1)
  1. HUMIRA [Suspect]
     Active Substance: ADALIMUMAB
     Indication: RHEUMATOID ARTHRITIS
     Route: 058
     Dates: end: 2016

REACTIONS (5)
  - Knee arthroplasty [Unknown]
  - Impaired healing [Unknown]
  - Impaired healing [Unknown]
  - Gallbladder operation [Unknown]
  - Pain [Unknown]

NARRATIVE: CASE EVENT DATE: 2016
